FAERS Safety Report 11134404 (Version 1)
Quarter: 2015Q2

REPORT INFORMATION
  Report Type: Spontaneous
  Country: CA (occurrence: CA)
  Receive Date: 20150525
  Receipt Date: 20150525
  Transmission Date: 20150821
  Serious: Yes (Other)
  Sender: FDA-Public Use
  Company Number: CA-009507513-1505CAN010132

PATIENT
  Age: 58 Year
  Sex: Female

DRUGS (1)
  1. FOSAMAX [Suspect]
     Active Substance: ALENDRONATE SODIUM
     Dosage: 70 MG, QW
     Route: 048
     Dates: start: 2005

REACTIONS (3)
  - Fracture [Unknown]
  - Femur fracture [Unknown]
  - Osteopenia [Unknown]

NARRATIVE: CASE EVENT DATE: 2005
